FAERS Safety Report 8589043-4 (Version None)
Quarter: 2012Q3

REPORT INFORMATION
  Report Type: 
  Country: None (occurrence: None)
  Receive Date: 20120731
  Receipt Date: 20120718
  Transmission Date: 20120928
  Serious: Yes (Hospitalization)
  Sender: FDA-Public Use
  Company Number: DSA_58681_2012

PATIENT
  Sex: Female

DRUGS (11)
  1. ASPIRIN [Concomitant]
  2. ATHYMIL [Concomitant]
  3. TACROLIMUS [Concomitant]
  4. CELLCEPT [Concomitant]
  5. FLAGYL [Suspect]
     Indication: CLOSTRIDIUM DIFFICILE COLITIS
     Dosage: (500 MG TID)
     Dates: start: 20120318, end: 20120526
  6. PREDNISONE TAB [Concomitant]
  7. RAPAMUNE [Concomitant]
  8. LASIX [Concomitant]
  9. TRANXENE [Concomitant]
  10. ATORVASTATIN [Concomitant]
  11. CITALOPRAM HYDROBROMIDE [Concomitant]

REACTIONS (10)
  - ACUTE POLYNEUROPATHY [None]
  - BALANCE DISORDER [None]
  - FALL [None]
  - NAUSEA [None]
  - HYPOKALAEMIA [None]
  - PARAESTHESIA [None]
  - VOMITING [None]
  - SCOTOMA [None]
  - LYMPHOPENIA [None]
  - RETINAL HAEMORRHAGE [None]
